FAERS Safety Report 17719366 (Version 1)
Quarter: 2020Q2

REPORT INFORMATION
  Report Type: Spontaneous
  Country: US (occurrence: US)
  Receive Date: 20200428
  Receipt Date: 20200428
  Transmission Date: 20200714
  Serious: No
  Sender: FDA-Public Use
  Company Number: US-ABBVIE-20K-163-3312486-00

PATIENT
  Age: 55 Year

DRUGS (1)
  1. SKYRIZI [Suspect]
     Active Substance: RISANKIZUMAB-RZAA
     Indication: PRODUCT USED FOR UNKNOWN INDICATION
     Dosage: 1 DOSE
     Route: 058
     Dates: start: 202001, end: 202001

REACTIONS (2)
  - Condition aggravated [Unknown]
  - Dyspnoea [Unknown]

NARRATIVE: CASE EVENT DATE: 202001
